FAERS Safety Report 9781088 (Version 1)
Quarter: 2013Q4

REPORT INFORMATION
  Report Type: Spontaneous
  Country: US (occurrence: None)
  Receive Date: 20131220
  Receipt Date: 20131220
  Transmission Date: 20140711
  Serious: Yes (Hospitalization)
  Sender: FDA-Public Use
  Company Number: ABR_01349_2013

PATIENT
  Age: 66 Year
  Sex: Male
  Weight: 92.99 kg

DRUGS (12)
  1. EDARBI [Suspect]
     Indication: HYPERTENSION
     Route: 048
     Dates: start: 201310, end: 20131102
  2. CYMBALTA (NOT SPECIFIED) [Suspect]
     Indication: PRODUCT USED FOR UNKNOWN INDICATION
  3. TRAZODONE [Suspect]
     Indication: PRODUCT USED FOR UNKNOWN INDICATION
  4. TAMSULOSIN [Concomitant]
  5. ASPIRIN [Concomitant]
  6. BRILINTA [Concomitant]
  7. POTASSIUM CHLORIDE [Concomitant]
  8. SPIRONOLACTONE [Concomitant]
  9. XANAX [Concomitant]
  10. ROXICODONE [Concomitant]
  11. METFORMIN [Concomitant]
  12. DIOVAN [Concomitant]

REACTIONS (1)
  - Feeling abnormal [None]
